FAERS Safety Report 26102808 (Version 2)
Quarter: 2025Q4

REPORT INFORMATION
  Report Type: Spontaneous
  Country: US (occurrence: US)
  Receive Date: 20251128
  Receipt Date: 20251230
  Transmission Date: 20260118
  Serious: Yes (Other)
  Sender: MERCK SHARP & DOHME LLC
  Company Number: US-009507513-2351792

PATIENT
  Age: 64 Year
  Sex: Female
  Weight: 72.121 kg

DRUGS (3)
  1. PEMBROLIZUMAB [Suspect]
     Active Substance: PEMBROLIZUMAB
     Indication: Lung adenocarcinoma stage III
     Route: 042
     Dates: start: 20240103, end: 20241226
  2. CARBOPLATIN [Concomitant]
     Active Substance: CARBOPLATIN
     Indication: Lung neoplasm malignant
     Route: 042
     Dates: start: 202401, end: 202403
  3. TAXOL [Concomitant]
     Active Substance: PACLITAXEL
     Route: 042

REACTIONS (2)
  - Anaplastic large cell lymphoma T- and null-cell types [Recovered/Resolved]
  - Gingival swelling [Recovered/Resolved]

NARRATIVE: CASE EVENT DATE: 20241220
